FAERS Safety Report 10415513 (Version 1)
Quarter: 2014Q3

REPORT INFORMATION
  Report Type: Report from Study
  Country: US (occurrence: US)
  Receive Date: 20140828
  Receipt Date: 20140828
  Transmission Date: 20150326
  Serious: Yes (Hospitalization, Other)
  Sender: FDA-Public Use
  Company Number: US-ABBVIE-14P-163-1275096-00

PATIENT
  Age: 86 Year
  Sex: Female

DRUGS (7)
  1. LOSARTAN [Concomitant]
     Active Substance: LOSARTAN
     Indication: BLOOD PRESSURE
  2. ASPIRIN. [Concomitant]
     Active Substance: ASPIRIN
     Indication: PRODUCT USED FOR UNKNOWN INDICATION
  3. NORCO [Concomitant]
     Active Substance: ACETAMINOPHEN\HYDROCODONE BITARTRATE
     Indication: PAIN
  4. ISOSORBIDE [Concomitant]
     Active Substance: ISOSORBIDE
     Indication: BLOOD PRESSURE
  5. ZOCOR [Concomitant]
     Active Substance: SIMVASTATIN
     Indication: BLOOD CHOLESTEROL
  6. RESTORIL [Concomitant]
     Active Substance: TEMAZEPAM
     Indication: INSOMNIA
  7. HUMIRA [Suspect]
     Active Substance: ADALIMUMAB
     Indication: PSORIASIS
     Dates: start: 20100104

REACTIONS (5)
  - Dizziness [Unknown]
  - Blood pressure increased [Recovered/Resolved]
  - Retinal tear [Recovered/Resolved]
  - Visual impairment [Recovering/Resolving]
  - Stress [Unknown]

NARRATIVE: CASE EVENT DATE: 201405
